FAERS Safety Report 6883972-5 (Version None)
Quarter: 2010Q3

REPORT INFORMATION
  Report Type: 
  Country: None (occurrence: None)
  Receive Date: 20100729
  Receipt Date: 20100720
  Transmission Date: 20110219
  Serious: Yes (Death)
  Sender: FDA-Public Use
  Company Number: DE-ELI_LILLY_AND_COMPANY-DE201007002221

PATIENT
  Sex: Male

DRUGS (4)
  1. SOMATROPIN [Suspect]
     Indication: GROWTH HORMONE DEFICIENCY
     Dosage: 0.2 MG, UNKNOWN
     Route: 065
     Dates: start: 20080424
  2. HYDROCORTISONE [Concomitant]
     Indication: HYPOPITUITARISM
     Dosage: UNK, 15 (UNITS UNK) IN THE MORNING, 5 (UNITS UNK) IN THE AFTERNOON
     Route: 065
  3. TESTOSTERONE [Concomitant]
     Indication: HYPOPITUITARISM
     Dosage: 25 MG, DAILY (1/D)
     Route: 065
  4. LEVOTHYROXINE SODIUM [Concomitant]
     Indication: HYPOPITUITARISM
     Dosage: 112 UG, DAILY (1/D)

REACTIONS (1)
  - PULMONARY EMBOLISM [None]
